FAERS Safety Report 8940995 (Version 1)
Quarter: 2012Q4

REPORT INFORMATION
  Report Type: 
  Country: NL (occurrence: NL)
  Receive Date: 20121203
  Receipt Date: 20121203
  Transmission Date: 20130627
  Serious: Yes (Hospitalization)
  Sender: FDA-Public Use
  Company Number: NL-009507513-1210NLD004455

PATIENT
  Age: 54 Year
  Sex: Male

DRUGS (7)
  1. PEGINTRON [Suspect]
     Indication: HEPATITIS C
     Dosage: 0.5 ml, qw, strength:100 mcg\0.5 ml
     Route: 058
     Dates: start: 20120907
  2. REBETOL [Suspect]
     Indication: HEPATITIS C
     Dosage: 200 mg, tid
     Route: 048
     Dates: start: 201211
  3. REBETOL [Suspect]
     Dosage: 5 times a day
     Route: 048
     Dates: start: 20120907, end: 201211
  4. VICTRELIS [Suspect]
     Indication: HEPATITIS C
     Dosage: 200 mg, 3 DD 4
     Route: 048
     Dates: start: 20121019
  5. PARACETAMOL [Concomitant]
     Indication: HEADACHE
     Dosage: 500 mg, 6 TIMES DAILY
     Route: 048
     Dates: start: 2012
  6. MOVICOL [Concomitant]
     Dosage: UNK, qod
     Route: 065
  7. POLYETHYLENE GLYCOL [Concomitant]

REACTIONS (7)
  - Hypotension [Not Recovered/Not Resolved]
  - Rib fracture [Recovered/Resolved]
  - Headache [Not Recovered/Not Resolved]
  - Mood swings [Not Recovered/Not Resolved]
  - Fatigue [Not Recovered/Not Resolved]
  - Diarrhoea [Not Recovered/Not Resolved]
  - Constipation [Not Recovered/Not Resolved]
